FAERS Safety Report 7387011 (Version 2)
Quarter: 2013Q3

REPORT INFORMATION
  Report Type: Spontaneous
  Country: US (occurrence: US)
  Receive Date: 20100513
  Receipt Date: 20130708
  Transmission Date: 20140515
  Serious: Yes (Hospitalization)
  Sender: FDA-Public Use
  Company Number: US-JNJFOC-20100307193

PATIENT
  Age: 11 Year
  Sex: Female

DRUGS (1)
  1. REMICADE [Suspect]
     Indication: RHEUMATOID ARTHRITIS
     Dates: start: 20100323

REACTIONS (4)
  - Anaphylactic reaction [Recovered/Resolved]
  - Abdominal pain upper [Recovered/Resolved]
  - Pyrexia [Recovered/Resolved]
  - Local swelling [Recovered/Resolved]
